FAERS Safety Report 7052247-6 (Version None)
Quarter: 2010Q4

REPORT INFORMATION
  Report Type: 
  Country: None (occurrence: None)
  Receive Date: 20101018
  Receipt Date: 20101018
  Transmission Date: 20110411
  Serious: Yes (Other)
  Sender: FDA-Public Use
  Company Number: None

PATIENT
  Age: 3 Year
  Sex: Male
  Weight: 18.1439 kg

DRUGS (2)
  1. SINGULAIR [Suspect]
     Indication: BRONCHIAL HYPERREACTIVITY
     Dosage: 4MG 1 DAILY PO
     Route: 048
     Dates: start: 20070401, end: 20070515
  2. SINGULAIR [Suspect]
     Indication: HYPERSENSITIVITY
     Dosage: 4MG 1 DAILY PO
     Route: 048
     Dates: start: 20070401, end: 20070515

REACTIONS (9)
  - AGGRESSION [None]
  - AGITATION [None]
  - CRYING [None]
  - DEPRESSED MOOD [None]
  - DEPRESSION [None]
  - HUNGER [None]
  - NEGATIVISM [None]
  - SLEEP TERROR [None]
  - SOMNAMBULISM [None]
